FAERS Safety Report 4307914-1 (Version None)
Quarter: 2004Q1

REPORT INFORMATION
  Report Type: 
  Country: None (occurrence: None)
  Receive Date: 20040301
  Receipt Date: 20020115
  Transmission Date: 20041129
  Serious: No
  Sender: FDA-Public Use
  Company Number: US-BRISTOL-MYERS SQUIBB COMPANY-11668993

PATIENT
  Age: 59 Year
  Weight: 102 kg

DRUGS (12)
  1. GLUCOVANCE [Suspect]
     Indication: DIABETES MELLITUS
     Route: 048
     Dates: start: 20020113
  2. GLUCOPHAGE [Suspect]
     Indication: DIABETES MELLITUS
  3. ATENOLOL [Concomitant]
  4. AVANDIA [Concomitant]
  5. PLAVIX [Concomitant]
  6. ECOTRIN [Concomitant]
  7. COZAAR [Concomitant]
  8. FOLIC ACID [Concomitant]
  9. VITAMIN E [Concomitant]
  10. CLARITIN [Concomitant]
  11. LASIX [Concomitant]
  12. PEPCID [Concomitant]

REACTIONS (2)
  - BLOOD GLUCOSE INCREASED [None]
  - HYPOGLYCAEMIA [None]
